FAERS Safety Report 5281115-5 (Version None)
Quarter: 2007Q1

REPORT INFORMATION
  Report Type: 
  Country: None (occurrence: None)
  Receive Date: 20070323
  Receipt Date: 20070311
  Transmission Date: 20070707
  Serious: Yes (Other)
  Sender: FDA-Public Use
  Company Number: CHNY2007GB01169

PATIENT
  Age: 55 Year
  Sex: Female

DRUGS (4)
  1. NICOTINE [Suspect]
     Indication: SMOKING CESSATION THERAPY
     Dosage: 14 MG, ONCE/SINGLE, TRANSDERMAL
     Route: 062
     Dates: start: 20070305, end: 20070305
  2. INSULIN (INSULIN) [Concomitant]
  3. ATORVASTATIN CALCIUM [Concomitant]
  4. ANTIHYPERTENSIVE DRUGS (NO INGREDIENTS/SUBSTANCES) [Concomitant]

REACTIONS (4)
  - DILATATION ATRIAL [None]
  - DYSPNOEA [None]
  - LIMB DISCOMFORT [None]
  - PAIN IN EXTREMITY [None]
